FAERS Safety Report 6741816-6 (Version None)
Quarter: 2010Q2

REPORT INFORMATION
  Report Type: 
  Country: None (occurrence: None)
  Receive Date: 20100526
  Receipt Date: 20100521
  Transmission Date: 20101027
  Serious: Yes (Death)
  Sender: FDA-Public Use
  Company Number: US-ROCHE-704995

PATIENT
  Sex: Male
  Weight: 69.9 kg

DRUGS (9)
  1. BEVACIZUMAB [Suspect]
     Indication: GLIOBLASTOMA
     Route: 042
     Dates: start: 20080423, end: 20090602
  2. BEVACIZUMAB [Suspect]
     Route: 042
  3. IRINOTECAN [Suspect]
     Indication: GLIOBLASTOMA
     Route: 042
     Dates: start: 20080423, end: 20090602
  4. TEMODAR [Suspect]
     Indication: GLIOBLASTOMA
     Dosage: TEMODAR WAS ADMINISTERED 1-5 DAYS OF EACH CYCLE
     Route: 065
     Dates: start: 20080423, end: 20090602
  5. MULTI VIT [Concomitant]
  6. VIT C [Concomitant]
  7. KELP [Concomitant]
  8. SELENIUM NOS [Concomitant]
  9. OMEGA III FATTY ACID [Concomitant]
     Dosage: DRUG REPORTED AS OMEGA 3

REACTIONS (1)
  - ACUTE MYELOID LEUKAEMIA [None]
